FAERS Safety Report 11328723 (Version 1)
Quarter: 2015Q3

REPORT INFORMATION
  Report Type: Spontaneous
  Country: US (occurrence: US)
  Receive Date: 20150731
  Receipt Date: 20150731
  Transmission Date: 20151125
  Serious: No
  Sender: FDA-Public Use
  Company Number: US-PFIZER INC-2015245760

PATIENT
  Age: 56 Year
  Sex: Female

DRUGS (5)
  1. LYRICA [Suspect]
     Active Substance: PREGABALIN
     Indication: PAIN
  2. LIDODERM [Suspect]
     Active Substance: LIDOCAINE
     Dosage: 5 %, 2X/DAY (12 HOURS A DAY)
  3. LUNESTA [Suspect]
     Active Substance: ESZOPICLONE
     Dosage: UNK
  4. MS CONTIN [Concomitant]
     Active Substance: MORPHINE SULFATE
     Dosage: 15 MG, 2X/DAY
     Route: 048
  5. LYRICA [Suspect]
     Active Substance: PREGABALIN
     Indication: NEUROPATHY PERIPHERAL
     Dosage: 75 MG, 2X/DAY
     Route: 048

REACTIONS (6)
  - Back pain [Unknown]
  - Allodynia [Unknown]
  - Condition aggravated [Unknown]
  - Pain in extremity [Unknown]
  - Burning sensation [Unknown]
  - Musculoskeletal chest pain [Unknown]
